FAERS Safety Report 19581023 (Version 1)
Quarter: 2021Q3

REPORT INFORMATION
  Report Type: Spontaneous
  Country: GB (occurrence: GB)
  Receive Date: 20210719
  Receipt Date: 20210719
  Transmission Date: 20211014
  Serious: Yes (Hospitalization)
  Sender: FDA-Public Use
  Company Number: GB-TEVA-2021-GB-1932333

PATIENT
  Age: 75 Year
  Sex: Female

DRUGS (15)
  1. IPRATROPIUM BROMIDE. [Concomitant]
     Active Substance: IPRATROPIUM BROMIDE
  2. SALBUTAMOL [Concomitant]
     Active Substance: ALBUTEROL
  3. LORAZEPAM. [Concomitant]
     Active Substance: LORAZEPAM
  4. QUETIAPINE. [Suspect]
     Active Substance: QUETIAPINE
     Indication: DEMENTIA
     Dosage: 25 MILLIGRAM DAILY; AT NIGHT.
     Route: 048
     Dates: start: 20210628, end: 20210707
  5. FLUTICASONE FUROATE [Concomitant]
     Active Substance: FLUTICASONE FUROATE
  6. MORPHINE SULPHATE [Concomitant]
     Active Substance: MORPHINE SULFATE
  7. NITROFURANTOIN. [Concomitant]
     Active Substance: NITROFURANTOIN
  8. LINAGLIPTIN [Concomitant]
     Active Substance: LINAGLIPTIN
  9. OMEPRAZOLE SODIUM [Concomitant]
     Active Substance: OMEPRAZOLE SODIUM
  10. ROSUVASTATIN. [Concomitant]
     Active Substance: ROSUVASTATIN
  11. SALMETEROL [Concomitant]
     Active Substance: SALMETEROL
  12. DULOXETINE. [Concomitant]
     Active Substance: DULOXETINE
  13. METFORMIN [Concomitant]
     Active Substance: METFORMIN HYDROCHLORIDE
  14. MIRTAZAPINE HYDROCHLORIDE [Concomitant]
     Active Substance: MIRTAZAPINE
  15. MOVICOL [Concomitant]
     Active Substance: POLYETHYLENE GLYCOL 3350\POTASSIUM CHLORIDE\SODIUM BICARBONATE\SODIUM CHLORIDE

REACTIONS (1)
  - Electrocardiogram QT prolonged [Not Recovered/Not Resolved]

NARRATIVE: CASE EVENT DATE: 20210701
